FAERS Safety Report 6394126-3 (Version None)
Quarter: 2009Q4

REPORT INFORMATION
  Report Type: 
  Country: None (occurrence: None)
  Receive Date: 20091008
  Receipt Date: 20090928
  Transmission Date: 20100525
  Serious: Yes (Hospitalization)
  Sender: FDA-Public Use
  Company Number: FR-PFIZER INC-2009274492

PATIENT
  Age: 78 Year

DRUGS (4)
  1. DALACINE [Suspect]
     Indication: BACTERIAL INFECTION
     Dosage: UNK
     Route: 048
     Dates: start: 20090818, end: 20090914
  2. DALACINE [Suspect]
     Indication: SEPSIS
  3. TAVANIC [Suspect]
     Indication: BACTERIAL INFECTION
     Dosage: UNK
     Route: 048
     Dates: start: 20090818, end: 20090914
  4. TAVANIC [Suspect]
     Indication: SEPSIS

REACTIONS (2)
  - ERYTHEMA MULTIFORME [None]
  - HEPATITIS [None]
